FAERS Safety Report 5301235-6 (Version None)
Quarter: 2007Q1

REPORT INFORMATION
  Report Type: 
  Country: None (occurrence: None)
  Receive Date: 20070201
  Receipt Date: 20061219
  Transmission Date: 20070707
  Serious: No
  Sender: FDA-Public Use
  Company Number: 2006PV027173

PATIENT
  Age: 62 Year
  Sex: Male
  Weight: 111.3581 kg

DRUGS (2)
  1. BYETTA [Suspect]
     Indication: DIABETES MELLITUS NON-INSULIN-DEPENDENT
     Dosage: BID;SC
     Route: 058
     Dates: start: 20060101
  2. ARTRIDOL [Suspect]
     Indication: ARTHROPATHY
     Dosage: QD
     Dates: start: 20060101

REACTIONS (1)
  - WEIGHT INCREASED [None]
